FAERS Safety Report 6002003-2 (Version None)
Quarter: 2008Q4

REPORT INFORMATION
  Report Type: 
  Country: None (occurrence: None)
  Receive Date: 20081215
  Receipt Date: 20081205
  Transmission Date: 20090506
  Serious: Yes (Hospitalization)
  Sender: FDA-Public Use
  Company Number: US-AMGEN-QUU322594

PATIENT
  Sex: Female

DRUGS (1)
  1. ENBREL [Suspect]
     Indication: RHEUMATOID ARTHRITIS
     Route: 058

REACTIONS (6)
  - CHOLELITHIASIS [None]
  - EYE PAIN [None]
  - INJECTION SITE ERYTHEMA [None]
  - PROTEIN URINE PRESENT [None]
  - RHEUMATOID ARTHRITIS [None]
  - SINUS HEADACHE [None]
